FAERS Safety Report 6016133-2 (Version None)
Quarter: 2008Q4

REPORT INFORMATION
  Report Type: 
  Country: None (occurrence: None)
  Receive Date: 20081222
  Receipt Date: 20081215
  Transmission Date: 20090506
  Serious: Yes (Hospitalization, Other)
  Sender: FDA-Public Use
  Company Number: FR-ABBOTT-08P-056-0493156-00

PATIENT
  Sex: Male

DRUGS (11)
  1. ODRIK [Suspect]
     Indication: HYPERTENSION
     Route: 048
     Dates: start: 20080101, end: 20081117
  2. ODRIK [Suspect]
     Indication: CARDIAC FAILURE CHRONIC
  3. FLUINDIONE [Interacting]
     Indication: HYPERTENSION
     Route: 048
     Dates: start: 20020101, end: 20081117
  4. FLUINDIONE [Interacting]
     Indication: CARDIAC FAILURE CHRONIC
  5. EZETIMIBE [Concomitant]
     Indication: HYPERTENSION
     Route: 048
     Dates: start: 20020101, end: 20081117
  6. EZETIMIBE [Concomitant]
     Indication: CARDIAC FAILURE CHRONIC
  7. MANIDIPINE [Concomitant]
     Indication: HYPERTENSION
     Route: 048
     Dates: start: 20020101, end: 20081117
  8. SOLATOL [Concomitant]
     Indication: HYPERTENSION
     Route: 048
  9. SOLATOL [Concomitant]
     Indication: CARDIAC FAILURE CHRONIC
  10. DIGOXINE [Concomitant]
     Indication: HYPERTENSION
     Route: 048
     Dates: start: 20020101
  11. DIGOXINE [Concomitant]
     Indication: CARDIAC FAILURE CHRONIC

REACTIONS (8)
  - DRUG INTERACTION [None]
  - GAMMA-GLUTAMYLTRANSFERASE INCREASED [None]
  - GASTRIC ULCER HAEMORRHAGE [None]
  - HAEMATEMESIS [None]
  - INTERNATIONAL NORMALISED RATIO INCREASED [None]
  - LOSS OF CONSCIOUSNESS [None]
  - MELAENA [None]
  - OESOPHAGEAL ULCER [None]
